FAERS Safety Report 24526699 (Version 1)
Quarter: 2024Q4

REPORT INFORMATION
  Report Type: Spontaneous
  Country: US (occurrence: US)
  Receive Date: 20241021
  Receipt Date: 20241021
  Transmission Date: 20250114
  Serious: Yes (Hospitalization, Other)
  Sender: BRISTOL-MYERS SQUIBB COMPANY
  Company Number: US-BRISTOL-MYERS SQUIBB COMPANY-2024-164688

PATIENT
  Age: 71 Year
  Sex: Male

DRUGS (2)
  1. ELIQUIS [Interacting]
     Active Substance: APIXABAN
     Indication: Product used for unknown indication
     Route: 048
  2. PHENYTOIN [Interacting]
     Active Substance: PHENYTOIN
     Indication: Product used for unknown indication

REACTIONS (2)
  - Seizure [Unknown]
  - Drug interaction [Unknown]
